FAERS Safety Report 7451469-X (Version None)
Quarter: 2011Q2

REPORT INFORMATION
  Report Type: 
  Country: None (occurrence: None)
  Receive Date: 20110502
  Receipt Date: 20110420
  Transmission Date: 20111010
  Serious: Yes (Hospitalization)
  Sender: FDA-Public Use
  Company Number: B0714253A

PATIENT
  Age: 71 Year
  Sex: Male

DRUGS (17)
  1. ZOPHREN [Suspect]
     Indication: PREMEDICATION
     Route: 048
     Dates: start: 20110324, end: 20110325
  2. DEBRIDAT [Concomitant]
     Route: 065
  3. ELISOR [Concomitant]
     Route: 065
  4. ROCEPHIN [Suspect]
     Indication: CHILLS
     Route: 042
     Dates: start: 20110324, end: 20110324
  5. AZOPT [Concomitant]
     Route: 065
  6. EPIRUBICINE [Suspect]
     Route: 042
     Dates: start: 20110324, end: 20110324
  7. EMEND [Suspect]
     Indication: PREMEDICATION
     Route: 048
     Dates: start: 20110324, end: 20110325
  8. SPASFON [Concomitant]
     Route: 065
  9. NEXIUM [Concomitant]
     Route: 065
  10. IKOREL [Concomitant]
     Route: 065
  11. EXFORGE [Concomitant]
     Route: 065
  12. OXALIPLATIN [Suspect]
     Route: 042
     Dates: start: 20110324, end: 20110324
  13. SOLU-MEDROL [Concomitant]
     Indication: PREMEDICATION
     Route: 065
  14. GAVISCON [Concomitant]
     Route: 065
  15. XELODA [Concomitant]
     Route: 048
     Dates: start: 20110303, end: 20110319
  16. KARDEGIC [Concomitant]
     Route: 065
  17. XALATAN [Concomitant]
     Route: 065

REACTIONS (4)
  - VOMITING [None]
  - DEHYDRATION [None]
  - RASH MACULO-PAPULAR [None]
  - RENAL FAILURE [None]
